FAERS Safety Report 24191616 (Version 1)
Quarter: 2024Q3

REPORT INFORMATION
  Report Type: Spontaneous
  Country: PT (occurrence: PT)
  Receive Date: 20240808
  Receipt Date: 20240808
  Transmission Date: 20241016
  Serious: Yes (Other)
  Sender: AUROBINDO
  Company Number: PT-AUROBINDO-AUR-APL-2024-039751

PATIENT
  Age: 47 Year
  Sex: Female

DRUGS (4)
  1. DEFLAZACORT [Suspect]
     Active Substance: DEFLAZACORT
     Indication: Toxic epidermal necrolysis
     Dosage: UNK
     Route: 065
  2. LEVOCETIRIZINE [Suspect]
     Active Substance: LEVOCETIRIZINE
     Indication: Toxic epidermal necrolysis
     Dosage: UNK
     Route: 065
  3. ACEMETACIN [Concomitant]
     Active Substance: ACEMETACIN
     Indication: Pain
     Dosage: UNK
     Route: 065
  4. ETORICOXIB [Concomitant]
     Active Substance: ETORICOXIB
     Indication: Pain
     Dosage: UNK
     Route: 065

REACTIONS (1)
  - Drug ineffective [Unknown]
